FAERS Safety Report 20422152 (Version 2)
Quarter: 2022Q1

REPORT INFORMATION
  Report Type: Spontaneous
  Country: CA (occurrence: CA)
  Receive Date: 20220203
  Receipt Date: 20220210
  Transmission Date: 20220423
  Serious: No
  Sender: FDA-Public Use
  Company Number: CA-PFIZER INC-202200154669

PATIENT
  Age: 83 Year
  Sex: Female

DRUGS (1)
  1. RUXIENCE [Suspect]
     Active Substance: RITUXIMAB-PVVR
     Indication: Glomerulonephritis membranous
     Dosage: 1 G, Q2 WEEKS X 2 DOSES
     Route: 042

REACTIONS (2)
  - Off label use [Unknown]
  - Off label use [Unknown]
